FAERS Safety Report 4470876-0 (Version None)
Quarter: 2004Q4

REPORT INFORMATION
  Report Type: 
  Country: None (occurrence: None)
  Receive Date: 20041011
  Receipt Date: 20040928
  Transmission Date: 20050328
  Serious: Yes (Hospitalization)
  Sender: FDA-Public Use
  Company Number: US-JNJFOC-20040804975

PATIENT
  Sex: Female

DRUGS (3)
  1. DURAGESIC [Suspect]
     Route: 062
     Dates: start: 20020101
  2. DURAGESIC [Suspect]
     Route: 062
     Dates: start: 20020101
  3. LSD [Suspect]
     Indication: ACCIDENTAL EXPOSURE
     Route: 049
     Dates: start: 20030901, end: 20030901

REACTIONS (15)
  - ACCIDENTAL OVERDOSE [None]
  - ANXIETY [None]
  - APPLICATION SITE PERSPIRATION [None]
  - BLOOD THYROID STIMULATING HORMONE DECREASED [None]
  - FLUID RETENTION [None]
  - GLUCOSE TOLERANCE IMPAIRED [None]
  - HEART RATE INCREASED [None]
  - HYPERHIDROSIS [None]
  - INADEQUATE ANALGESIA [None]
  - JOINT SWELLING [None]
  - MIGRAINE [None]
  - MUSCLE TIGHTNESS [None]
  - NAUSEA [None]
  - PAIN [None]
  - PHARMACEUTICAL PRODUCT COMPLAINT [None]
